FAERS Safety Report 8828302 (Version 1)
Quarter: 2012Q4

REPORT INFORMATION
  Report Type: 
  Country: US (occurrence: US)
  Receive Date: 20121005
  Receipt Date: 20121005
  Transmission Date: 20130627
  Serious: No
  Sender: FDA-Public Use
  Company Number: US-PFIZER INC-2012246528

PATIENT
  Age: 42 Year
  Sex: Female
  Weight: 102 kg

DRUGS (2)
  1. ADVIL [Suspect]
     Indication: HEADACHE
     Dosage: 1 to 4 capsules in day, as needed
     Route: 048
  2. ADVIL [Suspect]
     Indication: MYALGIA

REACTIONS (2)
  - Nausea [Unknown]
  - Product taste abnormal [Unknown]
